FAERS Safety Report 9293463 (Version 1)
Quarter: 2013Q2

REPORT INFORMATION
  Report Type: Spontaneous
  Country: US (occurrence: US)
  Receive Date: 20130516
  Receipt Date: 20130516
  Transmission Date: 20140414
  Serious: Yes (Other)
  Sender: FDA-Public Use
  Company Number: CHPA2013US008117

PATIENT
  Age: 69 Year
  Sex: Male

DRUGS (2)
  1. EXCEDRIN ES BACK + BODY [Suspect]
     Indication: PAIN
     Dosage: UNK, UNK
     Route: 048
  2. EXCEDRIN ES BACK + BODY [Suspect]
     Indication: ARTHRALGIA

REACTIONS (7)
  - Myocardial infarction [Unknown]
  - Hypertension [Not Recovered/Not Resolved]
  - Contusion [Not Recovered/Not Resolved]
  - Arthralgia [Not Recovered/Not Resolved]
  - Oedema peripheral [Recovered/Resolved]
  - Therapeutic response unexpected [Unknown]
  - Expired drug administered [Unknown]
